FAERS Safety Report 8560670-3 (Version None)
Quarter: 2012Q2

REPORT INFORMATION
  Report Type: 
  Country: None (occurrence: None)
  Receive Date: 20120418
  Receipt Date: 20090331
  Transmission Date: 20120825
  Serious: Yes (Other)
  Sender: FDA-Public Use
  Company Number: PHEH2009US03282

PATIENT
  Sex: Male

DRUGS (3)
  1. TKOSYN (DOFETILIDE) [Concomitant]
  2. ENABLEX [Suspect]
     Indication: MICTURITION URGENCY
     Dosage: 15 MG,
     Dates: start: 20090112
  3. ENABLEX [Suspect]
     Indication: MICTURITION URGENCY
     Dosage: 15 MG,
     Dates: start: 20081112, end: 20081126

REACTIONS (8)
  - IMPAIRED DRIVING ABILITY [None]
  - ABDOMINAL DISCOMFORT [None]
  - ACCOMMODATION DISORDER [None]
  - NAUSEA [None]
  - URINE OUTPUT DECREASED [None]
  - CONFUSIONAL STATE [None]
  - DYSURIA [None]
  - DRUG INEFFECTIVE [None]
